FAERS Safety Report 10419682 (Version 1)
Quarter: 2014Q3

REPORT INFORMATION
  Report Type: Spontaneous
  Country: US (occurrence: None)
  Receive Date: 20140827
  Receipt Date: 20140827
  Transmission Date: 20150326
  Serious: Yes (Hospitalization)
  Sender: FDA-Public Use
  Company Number: QSC-2014-0537

PATIENT
  Age: 64 Year
  Sex: Female

DRUGS (7)
  1. POTASSIUM (POTASSIUM) [Concomitant]
     Active Substance: POTASSIUM
  2. ACTHAR [Suspect]
     Active Substance: CORTICOTROPIN
     Indication: MULTIPLE SCLEROSIS RELAPSE
     Dates: start: 2013, end: 2013
  3. METHYLPREDNISOLONE (METHYLPREDNISOLONE) [Suspect]
     Active Substance: METHYLPREDNISOLONE
     Dates: start: 2013, end: 2013
  4. VITAMIN D3 [Concomitant]
     Active Substance: CHOLECALCIFEROL
  5. ROBAXIN (METHOCARBAMOL) [Concomitant]
  6. AUBAGIO (TERIFLUNOMIDE) [Concomitant]
  7. CELEXA (CITALOPRAM HYDRBROMIDE) [Concomitant]

REACTIONS (4)
  - Heart rate irregular [None]
  - Swelling face [None]
  - Chest pain [None]
  - Erythema [None]

NARRATIVE: CASE EVENT DATE: 2013
